FAERS Safety Report 6700796-X (Version None)
Quarter: 2010Q2

REPORT INFORMATION
  Report Type: 
  Country: None (occurrence: None)
  Receive Date: 20100428
  Receipt Date: 20100423
  Transmission Date: 20101027
  Serious: Yes (Hospitalization)
  Sender: FDA-Public Use
  Company Number: US-ELI_LILLY_AND_COMPANY-US201004006846

PATIENT
  Age: 70 Year
  Sex: Male

DRUGS (6)
  1. HUMULIN N [Suspect]
     Indication: TYPE 1 DIABETES MELLITUS
     Dosage: 18 U, EACH MORNING
     Dates: end: 20100101
  2. HUMULIN N [Suspect]
     Dosage: 20 U, EACH EVENING
     Dates: end: 20100101
  3. HUMULIN N [Suspect]
     Dosage: 20 U, EACH MORNING
     Dates: start: 20100101
  4. HUMULIN N [Suspect]
     Dosage: 22 U, EACH EVENING
     Dates: start: 20100101
  5. METFORMIN [Concomitant]
     Dosage: 1000 MG, 2/D
  6. GLIPIZIDE [Concomitant]
     Dosage: 10 MG, 2/D

REACTIONS (5)
  - BLOOD GLUCOSE DECREASED [None]
  - BLOOD GLUCOSE INCREASED [None]
  - INCORRECT DOSE ADMINISTERED [None]
  - INJECTION SITE HAEMORRHAGE [None]
  - PROSTATECTOMY [None]
